FAERS Safety Report 5584355-0 (Version None)
Quarter: 2008Q1

REPORT INFORMATION
  Report Type: 
  Country: None (occurrence: None)
  Receive Date: 20080108
  Receipt Date: 20080102
  Transmission Date: 20080703
  Serious: Yes (Other)
  Sender: FDA-Public Use
  Company Number: ES-JNJFOC-20080100406

PATIENT
  Age: 57 Year
  Sex: Female
  Weight: 66 kg

DRUGS (1)
  1. CAELYX [Suspect]
     Indication: BREAST CANCER
     Dosage: CYCLE 1
     Route: 042

REACTIONS (3)
  - LEUKOCYTOCLASTIC VASCULITIS [None]
  - PETECHIAE [None]
  - URTICARIA [None]
